FAERS Safety Report 7930952-4 (Version None)
Quarter: 2011Q4

REPORT INFORMATION
  Report Type: 
  Country: None (occurrence: None)
  Receive Date: 20111118
  Receipt Date: 20111118
  Transmission Date: 20120403
  Serious: Yes (Hospitalization)
  Sender: FDA-Public Use
  Company Number: None

PATIENT
  Sex: Male
  Weight: 47.6 kg

DRUGS (4)
  1. CYTARABINE [Suspect]
     Dosage: 888 MG
  2. CYCLOPHOSPHAMIDE [Suspect]
     Dosage: 1480 MG
  3. MERCAPTOPURINE [Suspect]
     Dosage: 1246 MG
  4. VINCRISTINE SULFATE [Suspect]
     Dosage: 4 MG

REACTIONS (3)
  - PYREXIA [None]
  - PAIN [None]
  - NEUTROPENIA [None]
